FAERS Safety Report 5164302-6 (Version None)
Quarter: 2006Q4

REPORT INFORMATION
  Report Type: 
  Country: None (occurrence: None)
  Receive Date: 20061129
  Receipt Date: 20061129
  Transmission Date: 20070319
  Serious: Yes (Hospitalization)
  Sender: FDA-Public Use
  Company Number: None

PATIENT
  Age: 69 Year
  Sex: Male

DRUGS (17)
  1. TACROLIMUS VARIES [Suspect]
     Indication: ASPERGILLOSIS
     Dosage: 3 - 4.5MG SEE NEXT SECTION BID PO
     Route: 048
     Dates: start: 20060525, end: 20060611
  2. TACROLIMUS VARIES [Suspect]
     Indication: PROPHYLAXIS AGAINST TRANSPLANT REJECTION
     Dosage: 3 - 4.5MG SEE NEXT SECTION BID PO
     Route: 048
     Dates: start: 20060525, end: 20060611
  3. VORICONAZOLE 200MG ROERIG [Suspect]
     Indication: PROPHYLAXIS
     Dosage: 200MG - SEE NEXT SECTION BID PO
     Route: 048
     Dates: start: 20060610, end: 20060616
  4. TACROLIMUS [Concomitant]
  5. VORICONAZOLE [Concomitant]
  6. LINEZOLID [Concomitant]
  7. RANITIDINE [Concomitant]
  8. PYRIDOXINE HCL [Concomitant]
  9. VALGANCYCLOVIR [Concomitant]
  10. AZATHIOPRINE [Concomitant]
  11. PREDNISONE TAB [Concomitant]
  12. SENNOSIDES [Concomitant]
  13. DOCUSATE [Concomitant]
  14. SULFAMETHOXAZOLE + TRIMETHOPRIM [Concomitant]
  15. INHALED ALBUTEROL/IPRATROPIUM [Concomitant]
  16. GUAIFENESIN [Concomitant]
  17. NATEGLINIDE [Concomitant]

REACTIONS (7)
  - ANXIETY [None]
  - DRUG INTERACTION [None]
  - DRUG LEVEL INCREASED [None]
  - HALLUCINATION, VISUAL [None]
  - HYPERGLYCAEMIA [None]
  - NEUROTOXICITY [None]
  - POST PROCEDURAL COMPLICATION [None]
